FAERS Safety Report 26011570 (Version 2)
Quarter: 2025Q4

REPORT INFORMATION
  Report Type: Report from Study
  Country: US (occurrence: None)
  Receive Date: 20251107
  Receipt Date: 20251226
  Transmission Date: 20260118
  Serious: Yes (Hospitalization)
  Sender: CHIESI
  Company Number: US-CHIESI-2025CHF07872

PATIENT
  Sex: Female

DRUGS (1)
  1. OCTREOTIDE [Suspect]
     Active Substance: OCTREOTIDE
     Indication: Acromegaly
     Dosage: 1 DOSAGE FORM, QD
     Route: 061
     Dates: start: 20250819

REACTIONS (4)
  - Ill-defined disorder [Recovered/Resolved]
  - Malaise [Unknown]
  - Memory impairment [Recovered/Resolved]
  - Off label use [Not Recovered/Not Resolved]

NARRATIVE: CASE EVENT DATE: 20250101
